FAERS Safety Report 6812330-4 (Version None)
Quarter: 2010Q3

REPORT INFORMATION
  Report Type: 
  Country: None (occurrence: None)
  Receive Date: 20100701
  Receipt Date: 20100618
  Transmission Date: 20110219
  Serious: Yes (Other)
  Sender: FDA-Public Use
  Company Number: PHHY2010GB23633

PATIENT
  Sex: Male

DRUGS (12)
  1. CLOZARIL [Suspect]
     Indication: SCHIZOPHRENIA
     Dosage: UNK
     Dates: start: 19980521
  2. OLANZAPINE [Concomitant]
     Dosage: 10 MG, BID
  3. PIRENZEPINE [Concomitant]
     Dosage: 50MG TDS
  4. ATROPINE [Concomitant]
     Dosage: ONE DROP DAILY
  5. BECLOMETHASONE DIPROPIONATE [Concomitant]
     Dosage: TWO PUFFS DAILY
  6. VALPROATE SODIUM [Concomitant]
     Dosage: 1 G, BID
  7. LITHIUM CARBONATE [Concomitant]
     Dosage: 1 G, QHS
  8. TAMSULOSIN HCL [Concomitant]
     Dosage: 400MCG PER DAY
  9. LEVOTHYROXINE SODIUM [Concomitant]
     Dosage: 200MCG PER DAY
  10. FERROUS FUMARATE [Concomitant]
     Dosage: 210MG PER DAY
  11. OMEPRAZOLE [Concomitant]
     Dosage: 20 MG, BID
  12. SALBUTAMOL [Concomitant]
     Dosage: UNK

REACTIONS (2)
  - BLOOD TEST ABNORMAL [None]
  - HYPOTHYROIDISM [None]
